FAERS Safety Report 19164653 (Version 3)
Quarter: 2021Q2

REPORT INFORMATION
  Report Type: Spontaneous
  Country: US (occurrence: US)
  Receive Date: 20210421
  Receipt Date: 20210624
  Transmission Date: 20210717
  Serious: No
  Sender: FDA-Public Use
  Company Number: US-SA-2021SA130041

PATIENT
  Age: 30 Year
  Sex: Female

DRUGS (4)
  1. COVID?19 VACCINE NOS. [Suspect]
     Active Substance: COVID-19 VACCINE NOS
     Indication: COVID-19 IMMUNISATION
     Dosage: UNK
     Dates: start: 2021
  2. COVID?19 VACCINE NOS. [Suspect]
     Active Substance: COVID-19 VACCINE NOS
     Dosage: UNK
     Dates: start: 20210408
  3. DUPIXENT [Suspect]
     Active Substance: DUPILUMAB
     Indication: ASTHMA
  4. DUPIXENT [Suspect]
     Active Substance: DUPILUMAB
     Indication: NASAL POLYPS
     Dosage: 300 MG,QOW
     Route: 058
     Dates: start: 20210216

REACTIONS (7)
  - Injection site pain [Recovered/Resolved]
  - Pain in extremity [Unknown]
  - Intentional dose omission [Unknown]
  - Pain [Unknown]
  - Product preparation error [Recovered/Resolved]
  - Musculoskeletal stiffness [Unknown]
  - Spinal pain [Unknown]

NARRATIVE: CASE EVENT DATE: 2021
